FAERS Safety Report 23230617 (Version 1)
Quarter: 2023Q4

REPORT INFORMATION
  Report Type: Spontaneous
  Country: BR (occurrence: BR)
  Receive Date: 20231127
  Receipt Date: 20231127
  Transmission Date: 20240109
  Serious: Yes (Other)
  Sender: FDA-Public Use
  Company Number: BR-ROCHE-1884538

PATIENT
  Age: 67 Year
  Sex: Female

DRUGS (5)
  1. CAPECITABINE [Suspect]
     Active Substance: CAPECITABINE
     Indication: Anal squamous cell carcinoma
     Dosage: TWICE DAILY DURING THE DAYS OF RADIOTHERAPY?DAILY DOSE: 1650 MILLIGRAM
  2. PACLITAXEL [Suspect]
     Active Substance: PACLITAXEL
     Indication: Metastases to liver
     Dosage: 6 CYCLES
  3. MITOMYCIN C [Suspect]
     Active Substance: MITOMYCIN
     Indication: Anal squamous cell carcinoma
     Dosage: DAY 1
  4. CETUXIMAB [Suspect]
     Active Substance: CETUXIMAB
     Indication: Metastases to liver
     Dosage: IN THE FIRST CYCLE
  5. CETUXIMAB [Suspect]
     Active Substance: CETUXIMAB
     Indication: Metastases to liver

REACTIONS (8)
  - Radiation skin injury [Recovered/Resolved]
  - Diarrhoea [Recovered/Resolved]
  - Fatigue [Recovered/Resolved]
  - Decreased appetite [Recovered/Resolved]
  - Abdominal pain upper [Recovered/Resolved]
  - Bedridden [Recovered/Resolved]
  - Impaired quality of life [Recovered/Resolved]
  - Off label use [Unknown]
